FAERS Safety Report 5187198-5 (Version None)
Quarter: 2006Q4

REPORT INFORMATION
  Report Type: 
  Country: None (occurrence: None)
  Receive Date: 20061211
  Receipt Date: 20061130
  Transmission Date: 20070319
  Serious: Yes (Death, Hospitalization)
  Sender: FDA-Public Use
  Company Number: HQWYE010101DEC06

PATIENT
  Age: 88 Year
  Sex: Male

DRUGS (1)
  1. CORDARONE [Suspect]
     Indication: ATRIAL FIBRILLATION
     Dosage: 200 MG 1X PER 1 DAY, ORAL
     Route: 048
     Dates: start: 20061001, end: 20061001

REACTIONS (6)
  - DILATATION VENTRICULAR [None]
  - HYPERSENSITIVITY [None]
  - NAUSEA [None]
  - PULMONARY FIBROSIS [None]
  - PULMONARY TOXICITY [None]
  - RASH [None]
